FAERS Safety Report 25534794 (Version 1)
Quarter: 2025Q3

REPORT INFORMATION
  Report Type: Spontaneous
  Country: EU (occurrence: EU)
  Receive Date: 20250709
  Receipt Date: 20250709
  Transmission Date: 20251020
  Serious: Yes (Hospitalization, Other)
  Sender: PFIZER
  Company Number: EU-PFIZER INC-202500137053

PATIENT
  Age: 71 Year
  Sex: Female

DRUGS (2)
  1. NOVATREX (METHOTREXATE) [Suspect]
     Active Substance: METHOTREXATE SODIUM
     Indication: Rheumatoid arthritis
     Dosage: 12.5 MG, WEEKLY (EVERY WEDNESDAY)
     Dates: start: 2009
  2. FOLIC ACID [Concomitant]
     Active Substance: FOLIC ACID
     Dosage: UNK, WEEKLY (EVERY FRIDAY)

REACTIONS (7)
  - Chest pain [Unknown]
  - Fibrin D dimer increased [Unknown]
  - Squamous cell carcinoma [Unknown]
  - Therapeutic product effect incomplete [Unknown]
  - Abdominal pain upper [Unknown]
  - Malaise [Unknown]
  - Irritable bowel syndrome [Unknown]
